FAERS Safety Report 5198032-1 (Version None)
Quarter: 2007Q1

REPORT INFORMATION
  Report Type: 
  Country: None (occurrence: None)
  Receive Date: 20070104
  Receipt Date: 20061227
  Transmission Date: 20070707
  Serious: Yes (Life-Threatening, Hospitalization)
  Sender: FDA-Public Use
  Company Number: JP-JNJFOC-20061207023

PATIENT
  Age: 72 Year
  Sex: Male

DRUGS (8)
  1. RISPERDAL [Suspect]
     Route: 048
  2. RISPERDAL [Suspect]
     Indication: DRUG USE FOR UNKNOWN INDICATION
     Route: 048
  3. LEVOMEPROMAZINE MALEATE [Concomitant]
     Route: 048
  4. HALOPERIDOL [Concomitant]
     Route: 048
  5. PROMETHAZINE HCL [Concomitant]
     Route: 048
  6. PANTETHINE [Concomitant]
     Route: 048
  7. VAGOSTIGMIN [Concomitant]
     Route: 048
  8. NELUROLEN [Concomitant]
     Route: 048

REACTIONS (1)
  - RHABDOMYOLYSIS [None]
